FAERS Safety Report 14456200 (Version 1)
Quarter: 2018Q1

REPORT INFORMATION
  Report Type: Spontaneous
  Country: IT (occurrence: IT)
  Receive Date: 20180130
  Receipt Date: 20180130
  Transmission Date: 20180509
  Serious: Yes (Hospitalization)
  Sender: FDA-Public Use
  Company Number: IT-CIPLA LTD.-2018IT02157

PATIENT

DRUGS (3)
  1. COLECALCIFEROL [Suspect]
     Active Substance: CHOLECALCIFEROL
     Indication: SUICIDE ATTEMPT
     Dosage: UNK
     Route: 048
     Dates: start: 20170904, end: 20170904
  2. TOPIRAMATE. [Suspect]
     Active Substance: TOPIRAMATE
     Indication: SUICIDE ATTEMPT
     Dosage: 30 DF, IN TOTAL
     Route: 048
     Dates: start: 20170904, end: 20170904
  3. XANAX [Suspect]
     Active Substance: ALPRAZOLAM
     Indication: SUICIDE ATTEMPT
     Dosage: 20 DF, IN TOTAL
     Route: 048
     Dates: start: 20170904, end: 20170904

REACTIONS (2)
  - Sopor [Unknown]
  - Suicide attempt [Unknown]

NARRATIVE: CASE EVENT DATE: 20170904
